FAERS Safety Report 5568764-1 (Version None)
Quarter: 2007Q4

REPORT INFORMATION
  Report Type: 
  Country: None (occurrence: None)
  Receive Date: 20071220
  Receipt Date: 20070123
  Transmission Date: 20080405
  Serious: No
  Sender: FDA-Public Use
  Company Number: A0632594A

PATIENT
  Age: 43 Year
  Sex: Male

DRUGS (9)
  1. AVODART [Suspect]
     Indication: BENIGN PROSTATIC HYPERPLASIA
     Dosage: .5MG AT NIGHT
     Route: 048
     Dates: start: 20061218
  2. LOVASTATIN [Concomitant]
  3. LYCOPENE [Concomitant]
  4. VITAMIN CAP [Concomitant]
  5. VITAMIN D [Concomitant]
  6. FOLIC ACID [Concomitant]
  7. TURMERIC [Concomitant]
  8. PRILOSEC [Concomitant]
  9. PROZAC [Concomitant]

REACTIONS (1)
  - DYSPEPSIA [None]
